FAERS Safety Report 9704153 (Version 1)
Quarter: 2013Q4

REPORT INFORMATION
  Report Type: Spontaneous
  Country: US (occurrence: US)
  Receive Date: 20131122
  Receipt Date: 20131122
  Transmission Date: 20140711
  Serious: No
  Sender: FDA-Public Use
  Company Number: US-GLAXOSMITHKLINE-A1033325A

PATIENT
  Age: 47 Year
  Sex: Female

DRUGS (2)
  1. WELLBUTRIN SR [Suspect]
     Indication: PRODUCT USED FOR UNKNOWN INDICATION
     Dosage: 150MG UNKNOWN
     Route: 065
  2. WELLBUTRIN XL [Suspect]
     Indication: PRODUCT USED FOR UNKNOWN INDICATION
     Dosage: 150MG UNKNOWN
     Route: 065
     Dates: start: 20100910

REACTIONS (1)
  - Drug dispensing error [Unknown]
